FAERS Safety Report 13175263 (Version 1)
Quarter: 2017Q1

REPORT INFORMATION
  Report Type: Spontaneous
  Country: BR (occurrence: BR)
  Receive Date: 20170201
  Receipt Date: 20170201
  Transmission Date: 20170428
  Serious: Yes (Hospitalization, Other)
  Sender: FDA-Public Use
  Company Number: BR-PFIZER INC-2017038116

PATIENT
  Age: 72 Year
  Sex: Female

DRUGS (5)
  1. CORUS [Concomitant]
     Active Substance: LOSARTAN POTASSIUM
     Dosage: UNK
  2. FRONTAL [Suspect]
     Active Substance: ALPRAZOLAM
     Indication: ANTIEMETIC SUPPORTIVE CARE
  3. MENELAT [Concomitant]
     Active Substance: MIRTAZAPINE
     Dosage: UNK
  4. FRONTAL [Suspect]
     Active Substance: ALPRAZOLAM
     Indication: AFFECTIVE DISORDER
     Dosage: UNK, (IN THE MORNING)
     Route: 048
  5. DORENE [Concomitant]
     Dosage: UNK

REACTIONS (6)
  - Pneumonia [Unknown]
  - Hypervigilance [Unknown]
  - Infarction [Unknown]
  - Arrhythmia [Unknown]
  - Immunodeficiency [Unknown]
  - Insomnia [Unknown]
